FAERS Safety Report 5245937-9 (Version None)
Quarter: 2007Q1

REPORT INFORMATION
  Report Type: 
  Country: None (occurrence: None)
  Receive Date: 20070221
  Receipt Date: 20070207
  Transmission Date: 20070707
  Serious: Yes (Death, Life-Threatening, Disabling)
  Sender: FDA-Public Use
  Company Number: OSCN-GE-0702S-0059

PATIENT
  Age: 35 Year
  Sex: Male
  Weight: 80 kg

DRUGS (1)
  1. OMNISCAN [Suspect]
     Indication: ACUTE ABDOMEN
     Dosage: 16 ML, SINGLE DOSE, I.V.
     Route: 042
     Dates: start: 20010608, end: 20010608

REACTIONS (5)
  - MOBILITY DECREASED [None]
  - MYOPATHY [None]
  - NEPHROTIC SYNDROME [None]
  - OEDEMA PERIPHERAL [None]
  - SCLERODERMA [None]
